FAERS Safety Report 7703550-5 (Version None)
Quarter: 2011Q3

REPORT INFORMATION
  Report Type: 
  Country: None (occurrence: None)
  Receive Date: 20110823
  Receipt Date: 20110809
  Transmission Date: 20111222
  Serious: Yes (Hospitalization)
  Sender: FDA-Public Use
  Company Number: PHHY2011IT70186

PATIENT
  Sex: Female

DRUGS (4)
  1. LOPRESSOR [Suspect]
     Dosage: 1/2TABLET
     Route: 048
  2. VALSARTAN  AND HYDROCHLOROTHIAZIDE [Suspect]
     Indication: HYPERTENSION
     Dosage: UNK UKN, UNK
     Route: 048
     Dates: start: 20100721
  3. IPERTEN [Suspect]
     Indication: HYPERTENSION
     Dosage: 5 MG, DAILY
     Route: 048
     Dates: start: 20100721, end: 20110721
  4. LOPRESSOR [Suspect]
     Indication: HYPERTENSION
     Dosage: 200 MG, DAILY
     Route: 048
     Dates: start: 20080721

REACTIONS (3)
  - HYPOTENSION [None]
  - ATRIAL FIBRILLATION [None]
  - PRESYNCOPE [None]
